FAERS Safety Report 7563703-6 (Version None)
Quarter: 2011Q2

REPORT INFORMATION
  Report Type: 
  Country: None (occurrence: None)
  Receive Date: 20110622
  Receipt Date: 20110610
  Transmission Date: 20111010
  Serious: Yes (Hospitalization, Disabling, Other)
  Sender: FDA-Public Use
  Company Number: PHHY2011US51241

PATIENT
  Age: 73 Year
  Sex: Female

DRUGS (9)
  1. NICOTINE [Interacting]
     Dosage: UNK UKN, UNK
  2. ACETAMINOPHEN AND CODEINE PHOSPHATE [Suspect]
     Indication: BIPOLAR DISORDER
     Dosage: UEVERY FOUR HOURS AS NEEDED
  3. CITALOPRAM HYDROBROMIDE [Suspect]
     Indication: BIPOLAR DISORDER
     Dosage: 20 MG DAILY
     Route: 048
  4. FAMOTIDINE [Suspect]
     Indication: BIPOLAR DISORDER
     Dosage: 10 MG, TID
     Route: 048
  5. ALBUTEROL [Suspect]
     Indication: BIPOLAR DISORDER
     Dosage: TWO PUFFS EVERY FOUR HOURS AS NEEDED
  6. VALPROIC ACID [Suspect]
     Indication: BIPOLAR DISORDER
     Dosage: 500 MG IN THE MORNING AND 750 MG AT BEDTIME
     Route: 048
  7. OLANZAPINE [Interacting]
     Indication: BIPOLAR DISORDER
     Dosage: 5 MG IN THE MORNING AND 25 MG AT BEDTIME
     Route: 048
  8. OLANZAPINE [Interacting]
     Dosage: 5 MG DAILY
  9. LEVOTHYROXINE SODIUM [Suspect]
     Indication: BIPOLAR DISORDER
     Dosage: 100 MG DAILY
     Route: 048

REACTIONS (12)
  - DEMENTIA [None]
  - WALKING AID USER [None]
  - EXTRAPYRAMIDAL DISORDER [None]
  - BRADYKINESIA [None]
  - ASTHENIA [None]
  - GAIT DISTURBANCE [None]
  - MOVEMENT DISORDER [None]
  - HALLUCINATION [None]
  - DRUG INTERACTION [None]
  - PARKINSONISM [None]
  - FALL [None]
  - MENTAL RETARDATION [None]
